FAERS Safety Report 8476275-9 (Version None)
Quarter: 2012Q2

REPORT INFORMATION
  Report Type: 
  Country: None (occurrence: None)
  Receive Date: 20120628
  Receipt Date: 20120625
  Transmission Date: 20120825
  Serious: No
  Sender: FDA-Public Use
  Company Number: US-BAYER-2012-063864

PATIENT

DRUGS (3)
  1. NAPROXEN [Concomitant]
  2. ACETAMINOPHEN [Concomitant]
  3. ALEVE (CAPLET) [Suspect]
     Indication: PAIN
     Dosage: 7 DF, UNK
     Route: 048

REACTIONS (1)
  - PAIN [None]
